FAERS Safety Report 13008634 (Version 2)
Quarter: 2017Q1

REPORT INFORMATION
  Report Type: Spontaneous
  Country: US (occurrence: US)
  Receive Date: 20161208
  Receipt Date: 20170104
  Transmission Date: 20170428
  Serious: No
  Sender: FDA-Public Use
  Company Number: US-PFIZER INC-2016561510

PATIENT
  Age: 46 Year
  Sex: Female
  Weight: 118.59 kg

DRUGS (1)
  1. GABAPENTIN. [Suspect]
     Active Substance: GABAPENTIN
     Indication: PAIN IN EXTREMITY
     Dosage: UNK

REACTIONS (5)
  - Peripheral swelling [Unknown]
  - Swelling [Unknown]
  - Product use issue [Unknown]
  - Sedation [Unknown]
  - Pain [Unknown]
